FAERS Safety Report 6509046-0 (Version None)
Quarter: 2009Q4

REPORT INFORMATION
  Report Type: 
  Country: None (occurrence: None)
  Receive Date: 20091221
  Receipt Date: 20090908
  Transmission Date: 20100525
  Serious: No
  Sender: FDA-Public Use
  Company Number: US-ASTRAZENECA-2009SE12036

PATIENT
  Sex: Female
  Weight: 54.9 kg

DRUGS (5)
  1. CRESTOR [Suspect]
  2. FISHOIL [Concomitant]
  3. SYNTHROID [Concomitant]
  4. STALIX [Concomitant]
  5. VITAMINS [Concomitant]

REACTIONS (3)
  - BACK PAIN [None]
  - DIZZINESS [None]
  - PAIN IN EXTREMITY [None]
